FAERS Safety Report 12502899 (Version 2)
Quarter: 2016Q3

REPORT INFORMATION
  Report Type: Spontaneous
  Country: US (occurrence: US)
  Receive Date: 20160628
  Receipt Date: 20160815
  Transmission Date: 20161109
  Serious: Yes (Other)
  Sender: FDA-Public Use
  Company Number: US-BTG INTERNATIONAL LTD-BTG00751

PATIENT

DRUGS (6)
  1. CROFAB [Suspect]
     Active Substance: CROTALIDAE POLYVALENT IMMUNE FAB (OVINE)
     Dosage: 2 VIALS
     Dates: start: 20160611, end: 20160611
  2. CROFAB [Suspect]
     Active Substance: CROTALIDAE POLYVALENT IMMUNE FAB (OVINE)
     Dosage: 2 VIALS
     Dates: start: 20160611, end: 20160611
  3. CROFAB [Suspect]
     Active Substance: CROTALIDAE POLYVALENT IMMUNE FAB (OVINE)
     Dosage: 2 VIALS
     Dates: start: 20160609, end: 20160609
  4. CROFAB [Suspect]
     Active Substance: CROTALIDAE POLYVALENT IMMUNE FAB (OVINE)
     Dosage: 2 VIALS
     Dates: start: 20160610, end: 20160610
  5. CROFAB [Suspect]
     Active Substance: CROTALIDAE POLYVALENT IMMUNE FAB (OVINE)
     Indication: PRODUCT USED FOR UNKNOWN INDICATION
     Dosage: 4 VIALS IN 250CC NS
     Dates: start: 20160609, end: 20160609
  6. CROFAB [Suspect]
     Active Substance: CROTALIDAE POLYVALENT IMMUNE FAB (OVINE)
     Dosage: 1 VIAL
     Dates: start: 20160610, end: 20160610

REACTIONS (3)
  - Fibrin D dimer increased [Recovered/Resolved]
  - Prothrombin time prolonged [Recovered/Resolved]
  - Blood fibrinogen decreased [Unknown]

NARRATIVE: CASE EVENT DATE: 20160609
